FAERS Safety Report 21052595 (Version 1)
Quarter: 2022Q3

REPORT INFORMATION
  Report Type: Spontaneous
  Country: US (occurrence: None)
  Receive Date: 20220707
  Receipt Date: 20220707
  Transmission Date: 20221026
  Serious: Yes (Hospitalization)
  Sender: FDA-Public Use
  Company Number: None

PATIENT
  Age: 47 Year
  Sex: Male

DRUGS (10)
  1. MYCOPHENOLATE MOFETIL [Suspect]
     Active Substance: MYCOPHENOLATE MOFETIL
     Indication: Renal transplant
     Dosage: FREQUENCY : TWICE A DAY;?
     Route: 048
     Dates: start: 20211029
  2. MYCOPHENOLATE MOFETIL [Suspect]
     Active Substance: MYCOPHENOLATE MOFETIL
     Indication: Liver transplant
  3. TACROLIMUS [Concomitant]
     Active Substance: TACROLIMUS
  4. ALLOPURINOL [Concomitant]
     Active Substance: ALLOPURINOL
  5. CALCIUM\VITAMIN D [Concomitant]
     Active Substance: CALCIUM\VITAMIN D
  6. CARVEDILOL [Concomitant]
     Active Substance: CARVEDILOL
  7. FERROUS SULFATE [Concomitant]
     Active Substance: FERROUS SULFATE
  8. MAGNESIUM OXIDE 400MG [Concomitant]
     Active Substance: MAGNESIUM OXIDE
  9. PANTOPRAZOLE SODIUM [Concomitant]
     Active Substance: PANTOPRAZOLE SODIUM
  10. Sulfamethoxazole TMP SS tablet [Concomitant]

REACTIONS (1)
  - Blood creatine increased [None]

NARRATIVE: CASE EVENT DATE: 20220707
